FAERS Safety Report 8844561 (Version 1)
Quarter: 2012Q4

REPORT INFORMATION
  Report Type: Report from Study
  Country: JP (occurrence: JP)
  Receive Date: 20121017
  Receipt Date: 20121017
  Transmission Date: 20130627
  Serious: Yes (Hospitalization)
  Sender: FDA-Public Use
  Company Number: JP-VERTEX PHARMACEUTICAL INC.-AE-2012-007181

PATIENT
  Age: 60 Year
  Sex: Male

DRUGS (11)
  1. VX-950 [Suspect]
     Indication: HEPATITIS C
     Dosage: 2250 mg, qd
     Route: 048
     Dates: start: 20120321, end: 20120502
  2. RIBAVIRIN [Suspect]
     Indication: HEPATITIS C
     Dosage: 600 mg, qd
     Route: 048
     Dates: start: 20120321, end: 20120410
  3. RIBAVIRIN [Suspect]
     Dosage: 400 mg, qd
     Route: 048
     Dates: start: 20120411, end: 20120502
  4. PEGINTERFERON ALFA-2B [Concomitant]
     Route: 058
     Dates: start: 20120321, end: 20120425
  5. LENDORMIN [Concomitant]
     Route: 048
  6. LOXONIN [Concomitant]
     Dosage: 60 mg, prn
     Route: 048
     Dates: start: 20120321
  7. MAGLAX [Concomitant]
     Dosage: 250 mg, prn
     Route: 048
     Dates: start: 20120329
  8. OMEPRAL /00661201/ [Concomitant]
     Route: 048
  9. PROMAC                             /00024401/ [Concomitant]
     Route: 048
     Dates: start: 20120329
  10. SELBEX [Concomitant]
     Dosage: 50 mg, prn
     Route: 048
     Dates: start: 20120321
  11. URSO                               /00465701/ [Concomitant]
     Dosage: 300 mg, qd
     Route: 048

REACTIONS (1)
  - Hepatic cancer [Not Recovered/Not Resolved]
